FAERS Safety Report 7455401-4 (Version None)
Quarter: 2011Q2

REPORT INFORMATION
  Report Type: 
  Country: None (occurrence: None)
  Receive Date: 20110503
  Receipt Date: 20110502
  Transmission Date: 20111010
  Serious: Yes (Hospitalization)
  Sender: FDA-Public Use
  Company Number: IT-ABBOTT-11P-083-0722761-00

PATIENT
  Sex: Male

DRUGS (3)
  1. NORVIR [Suspect]
     Indication: HIV INFECTION
     Route: 048
     Dates: start: 20080526, end: 20101029
  2. REYATAZ [Suspect]
     Indication: HIV INFECTION
     Route: 048
     Dates: start: 20080526, end: 20101029
  3. TRUVADA [Suspect]
     Indication: HIV INFECTION
     Dosage: 445 MG DAILY
     Route: 048
     Dates: start: 20060130, end: 20101029

REACTIONS (1)
  - NEPHROLITHIASIS [None]
